FAERS Safety Report 6894370-2 (Version None)
Quarter: 2010Q3

REPORT INFORMATION
  Report Type: 
  Country: None (occurrence: None)
  Receive Date: 20100802
  Receipt Date: 20100722
  Transmission Date: 20110219
  Serious: Yes (Hospitalization)
  Sender: FDA-Public Use
  Company Number: NL-SANOFI-AVENTIS-200910411GDDC

PATIENT
  Age: 84 Year
  Sex: Male
  Weight: 67 kg

DRUGS (25)
  1. BLINDED THERAPY [Suspect]
     Route: 048
     Dates: start: 20080704, end: 20080704
  2. BLINDED THERAPY [Suspect]
     Route: 048
     Dates: start: 20081107, end: 20081107
  3. DOCETAXEL [Suspect]
     Route: 042
     Dates: start: 20080704, end: 20080704
  4. DOCETAXEL [Suspect]
     Route: 042
     Dates: start: 20081107, end: 20081107
  5. PREDNISOLONE [Suspect]
     Route: 048
     Dates: start: 20080704, end: 20081230
  6. FOSAMAX [Concomitant]
  7. OMNIC [Concomitant]
  8. SUCRALFATE [Concomitant]
     Dosage: DOSE AS USED: UNK
  9. ACUZIDE [Concomitant]
     Dosage: DOSE AS USED: 20/12.5 MG
  10. ASCAL [Concomitant]
  11. DIFLUCAN [Concomitant]
  12. TAMSULOSIN HCL [Concomitant]
  13. SPIRIVA [Concomitant]
  14. ALENDRONIC ACID [Concomitant]
  15. LIDOCAINE [Concomitant]
  16. FLUTICASONE W/SALMETEROL [Concomitant]
  17. AMOXICILLIN SODIUM/CLAVULANATE POTASSIUM [Concomitant]
  18. LASILETTEN [Concomitant]
     Dosage: DOSE AS USED: UNK
     Dates: start: 20080624
  19. CHLORHEXIDINE [Concomitant]
     Dosage: DOSE AS USED: UNK
     Dates: start: 20080815
  20. NYSTATINE ^LABAZ^ [Concomitant]
     Dosage: DOSE AS USED: UNK
     Dates: start: 20080822
  21. SIMVASTATIN [Concomitant]
  22. ANTICHOLINERGIC AGENTS [Concomitant]
  23. ZOLADEX [Concomitant]
  24. FRAGMIN [Concomitant]
     Dosage: DOSE:2500 UNIT(S)
  25. ALL OTHER THERAPEUTIC PRODUCTS [Concomitant]

REACTIONS (2)
  - ERYSIPELAS [None]
  - PROTEINURIA [None]
